FAERS Safety Report 9375531 (Version 3)
Quarter: 2013Q3

REPORT INFORMATION
  Report Type: Report from Study
  Country: CL (occurrence: CL)
  Receive Date: 20130628
  Receipt Date: 20130805
  Transmission Date: 20140515
  Serious: Yes (Other)
  Sender: FDA-Public Use
  Company Number: PHHY2013CL067109

PATIENT
  Age: 53 Year
  Sex: Female

DRUGS (3)
  1. TAREG [Suspect]
     Indication: HYPERTENSION
     Dosage: 1.5 DF (160MG), ONE TABLET IN THE MORNING AND HALF TABLET IN THE AFTERNOON
     Route: 048
     Dates: start: 201208
  2. EUTIROX [Concomitant]
     Indication: THYROID DISORDER
     Dosage: UNK UKN, UNK
     Route: 048
  3. RITMOCOR [Concomitant]
     Dosage: 150 MG, QD
     Route: 048

REACTIONS (2)
  - Leiomyoma [Recovered/Resolved]
  - Wrong technique in drug usage process [Unknown]
